FAERS Safety Report 4811707-6 (Version None)
Quarter: 2005Q4

REPORT INFORMATION
  Report Type: 
  Country: None (occurrence: None)
  Receive Date: 20051025
  Receipt Date: 20051012
  Transmission Date: 20060501
  Serious: Yes (Hospitalization)
  Sender: FDA-Public Use
  Company Number: 2005141921

PATIENT
  Age: 67 Year
  Sex: Female

DRUGS (3)
  1. FLUCONAZOLE [Suspect]
     Indication: ILL-DEFINED DISORDER
     Dosage: 100 MG (150 MG, DAILY), ORAL
     Route: 048
     Dates: start: 20050721, end: 20050826
  2. LESCOL [Suspect]
     Indication: HYPERCHOLESTEROLAEMIA
     Dosage: 80 MG (DAILY), ORAL
     Route: 048
     Dates: start: 20031115, end: 20050826
  3. FUCIDINE CAP [Suspect]
     Indication: ILL-DEFINED DISORDER
     Dosage: 1000 MG (500 MG, BID), ORAL
     Route: 048
     Dates: start: 20050721, end: 20050826

REACTIONS (2)
  - MUSCLE NECROSIS [None]
  - RHABDOMYOLYSIS [None]
